FAERS Safety Report 22671472 (Version 5)
Quarter: 2024Q3

REPORT INFORMATION
  Report Type: Spontaneous
  Country: US (occurrence: US)
  Receive Date: 20230705
  Receipt Date: 20240824
  Transmission Date: 20241017
  Serious: No
  Sender: BRISTOL MYERS SQUIBB
  Company Number: US-BRISTOL-MYERS SQUIBB COMPANY-2023-094243

PATIENT
  Age: 73 Year
  Sex: Female
  Weight: 75.75 kg

DRUGS (1)
  1. REVLIMID [Suspect]
     Active Substance: LENALIDOMIDE
     Indication: Plasma cell myeloma
     Dosage: FREQUENCY: DAILY FOR 14 DAYS
     Route: 048
     Dates: start: 20230601

REACTIONS (4)
  - Fatigue [Unknown]
  - Off label use [Unknown]
  - Dyspnoea [Unknown]
  - Malaise [Unknown]
